FAERS Safety Report 7651639-1 (Version None)
Quarter: 2011Q3

REPORT INFORMATION
  Report Type: 
  Country: None (occurrence: None)
  Receive Date: 20110802
  Receipt Date: 20110719
  Transmission Date: 20111222
  Serious: Yes (Hospitalization, Other)
  Sender: FDA-Public Use
  Company Number: CA-BAYER-2011-057364

PATIENT
  Age: 55 Year
  Sex: Male
  Weight: 127 kg

DRUGS (22)
  1. XARELTO [Interacting]
     Indication: KNEE ARTHROPLASTY
  2. ROPIVACAINE HYDROCHLORIDE [Concomitant]
     Dosage: 30 ML, UNK, 0.50%, POST-OP
     Dates: start: 20101108, end: 20101108
  3. KETOROLAC TROMETHAMINE [Concomitant]
     Dosage: 15 MG, UNK
     Dates: start: 20101108, end: 20101108
  4. MIDAZOLAM HCL [Concomitant]
     Dosage: 2 MG, UNK
     Dates: start: 20101108, end: 20101108
  5. NESACAINE [Concomitant]
     Dosage: 3 ML, UNK
     Dates: start: 20101108, end: 20101108
  6. ACETAMINOPHEN [Concomitant]
     Dosage: 1000 MG, UNK
     Dates: start: 20101108, end: 20101108
  7. XARELTO [Interacting]
     Indication: THROMBOSIS PROPHYLAXIS
     Dosage: 10 MG, UNK
     Dates: start: 20101108, end: 20101110
  8. DIPRIVAN [Concomitant]
     Dosage: 30 ?G, UNK
     Dates: start: 20101108, end: 20101108
  9. TRANEXAMIC ACID [Concomitant]
     Dosage: 2000 MG, UNK
     Dates: start: 20101108, end: 20101108
  10. AMITRIPTYLINE HCL [Concomitant]
     Dosage: 25 MG, UNK
     Dates: start: 20060101
  11. MORPHINE [Concomitant]
     Dosage: 5 MG, UNK
     Dates: start: 20101108, end: 20101108
  12. PREGABALIN [Concomitant]
     Dosage: 75 MG, UNK
     Dates: start: 20101108, end: 20101108
  13. DEXAMETHASONE [Concomitant]
     Dosage: 4 MG, UNK
     Dates: start: 20101108, end: 20101108
  14. TENORMIN [Concomitant]
     Indication: HYPERTENSION
     Dosage: 50 MG, UNK
     Dates: start: 20040101
  15. VENLAFAXINE [Concomitant]
     Dosage: 75 MG, UNK
     Dates: start: 20060101
  16. EPINEPHRINE [Concomitant]
     Dosage: 0.2 ML, UNK
     Dates: start: 20101108, end: 20101108
  17. CELECOXIB [Concomitant]
     Dosage: 400 MG, UNK
     Dates: start: 20101108, end: 20101108
  18. APO K [Concomitant]
     Dosage: 1200 MG, UNK
     Dates: start: 20060101
  19. ROPIVACAINE HYDROCHLORIDE [Concomitant]
     Dosage: 20 ML, UNK, INTRA-OP
     Dates: start: 20101108, end: 20101108
  20. ACETYLSALICYLIC ACID SRT [Suspect]
     Dosage: 81 MG, UNK
     Dates: start: 20101112
  21. CEFAZOLIN [Concomitant]
     Dosage: 2 G, UNK
     Dates: start: 20101108, end: 20101108
  22. OXYCODONE HCL [Concomitant]
     Dosage: 10 MG, UNK
     Dates: start: 20101108, end: 20101108

REACTIONS (3)
  - POST PROCEDURAL HAEMORRHAGE [None]
  - KNEE ARTHROPLASTY [None]
  - THROMBOCYTOPENIA [None]
